FAERS Safety Report 7336077-3 (Version None)
Quarter: 2011Q1

REPORT INFORMATION
  Report Type: 
  Country: None (occurrence: None)
  Receive Date: 20110307
  Receipt Date: 20110302
  Transmission Date: 20110831
  Serious: Yes (Hospitalization)
  Sender: FDA-Public Use
  Company Number: ES-ELI_LILLY_AND_COMPANY-ES201002003727

PATIENT
  Sex: Male
  Weight: 67 kg

DRUGS (14)
  1. VENTOLIN [Concomitant]
     Indication: CHRONIC OBSTRUCTIVE PULMONARY DISEASE
     Dates: start: 20041117
  2. ATROVENT [Concomitant]
     Indication: CHRONIC OBSTRUCTIVE PULMONARY DISEASE
     Dates: start: 20041117
  3. CISPLATIN [Suspect]
     Indication: NON-SMALL CELL LUNG CANCER
     Dosage: 75 MG/M2, DAY 1 EVERY 21 DAYS
     Route: 042
     Dates: start: 20091020, end: 20091230
  4. DIGOXIN [Concomitant]
     Indication: ATRIAL FIBRILLATION
     Dates: start: 20041217
  5. FOLIC ACID [Concomitant]
     Indication: PROPHYLAXIS
     Dosage: UNK, UNK
     Dates: start: 20081014, end: 20100119
  6. DEXAMETHASONE [Concomitant]
     Indication: PROPHYLAXIS
     Dates: start: 20081019, end: 20091231
  7. HEPARIN [Concomitant]
     Indication: RENAL ARTERY THROMBOSIS
     Dates: start: 20091202
  8. PEMETREXED [Suspect]
     Indication: NON-SMALL CELL LUNG CANCER
     Dosage: 500 MG/M2, DAY 1 EVERY 21 DAYS
     Route: 042
     Dates: start: 20091020, end: 20091230
  9. VITAMIN B-12 [Concomitant]
     Indication: PROPHYLAXIS
     Dosage: UNK, UNK
     Dates: start: 20081014, end: 20100119
  10. MASDIL [Concomitant]
     Indication: ATRIAL FIBRILLATION
     Dates: start: 20041217
  11. SERETIDE [Concomitant]
     Indication: CHRONIC OBSTRUCTIVE PULMONARY DISEASE
     Dates: start: 20041217
  12. ALDACTONE [Concomitant]
     Indication: HYPERTENSION
     Dates: start: 20041217
  13. SEGURIL [Concomitant]
     Indication: ATRIAL FIBRILLATION
     Dates: start: 20041217
  14. NOLOTIL [Concomitant]
     Indication: CHEST PAIN
     Dates: start: 20091013

REACTIONS (6)
  - HAEMOPTYSIS [None]
  - ACUTE RESPIRATORY FAILURE [None]
  - CHEST PAIN [None]
  - DYSPNOEA [None]
  - NON-SMALL CELL LUNG CANCER [None]
  - NEOPLASM MALIGNANT [None]
